FAERS Safety Report 7949511-2 (Version None)
Quarter: 2011Q4

REPORT INFORMATION
  Report Type: 
  Country: None (occurrence: None)
  Receive Date: 20111130
  Receipt Date: 20111121
  Transmission Date: 20120403
  Serious: Yes (Life-Threatening, Hospitalization)
  Sender: FDA-Public Use
  Company Number: GR-CELGENEUS-066-21660-11113068

PATIENT
  Sex: Female
  Weight: 60 kg

DRUGS (1)
  1. ABRAXANE [Suspect]
     Indication: BREAST CANCER
     Dosage: 360 MILLIGRAM
     Route: 041
     Dates: start: 20111111, end: 20111111

REACTIONS (2)
  - PANCYTOPENIA [None]
  - FEBRILE NEUTROPENIA [None]
